FAERS Safety Report 21299284 (Version 1)
Quarter: 2022Q3

REPORT INFORMATION
  Report Type: Spontaneous
  Country: US (occurrence: None)
  Receive Date: 20220906
  Receipt Date: 20220906
  Transmission Date: 20221026
  Serious: No
  Sender: FDA-Public Use
  Company Number: None

PATIENT

DRUGS (1)
  1. EPIPEN [Suspect]
     Active Substance: EPINEPHRINE
     Route: 058

REACTIONS (4)
  - Product expiration date issue [None]
  - Product barcode issue [None]
  - Product packaging issue [None]
  - Circumstance or information capable of leading to device use error [None]
